FAERS Safety Report 11427458 (Version 1)
Quarter: 2015Q3

REPORT INFORMATION
  Report Type: Spontaneous
  Country: US (occurrence: US)
  Receive Date: 20150827
  Receipt Date: 20150827
  Transmission Date: 20151125
  Serious: No
  Sender: FDA-Public Use
  Company Number: US-SA-2015SA010641

PATIENT
  Age: 54 Year
  Sex: Male
  Weight: 80.4 kg

DRUGS (33)
  1. COZAAR [Concomitant]
     Active Substance: LOSARTAN POTASSIUM
     Route: 048
     Dates: start: 20111104
  2. XYZAL [Concomitant]
     Active Substance: LEVOCETIRIZINE DIHYDROCHLORIDE
     Dates: start: 20141226
  3. PROAIR HFA [Concomitant]
     Active Substance: ALBUTEROL SULFATE
     Dosage: 1 DOSE
     Dates: start: 20141226
  4. COZAAR [Concomitant]
     Active Substance: LOSARTAN POTASSIUM
     Dates: start: 20141226
  5. PREDNISONE. [Concomitant]
     Active Substance: PREDNISONE
     Dates: start: 20141226
  6. LOPRESSOR [Concomitant]
     Active Substance: METOPROLOL TARTRATE
     Dates: start: 20141226
  7. ZETIA [Concomitant]
     Active Substance: EZETIMIBE
     Dates: start: 20141226
  8. FLOMAX [Concomitant]
     Active Substance: TAMSULOSIN HYDROCHLORIDE
     Dates: start: 20141226
  9. NORMAL SALINE [Concomitant]
     Active Substance: SODIUM CHLORIDE
     Dosage: 0.9 % DILU/FLUSH
     Route: 042
     Dates: start: 20140501
  10. SODIUM CHLORIDE. [Concomitant]
     Active Substance: SODIUM CHLORIDE
     Dosage: 0.9 % FLUSH
     Route: 042
     Dates: start: 20140501
  11. FABRAZYME [Suspect]
     Active Substance: AGALSIDASE BETA
     Indication: FABRY^S DISEASE
     Route: 042
  12. NORVASC [Concomitant]
     Active Substance: AMLODIPINE BESYLATE
     Dates: start: 20141226
  13. LIPITOR [Concomitant]
     Active Substance: ATORVASTATIN CALCIUM
     Dates: start: 20141226
  14. ASPIRIN. [Concomitant]
     Active Substance: ASPIRIN
     Dates: start: 20141226
  15. COLACE [Concomitant]
     Active Substance: DOCUSATE SODIUM
     Dates: start: 20141226
  16. EPIPEN [Concomitant]
     Active Substance: EPINEPHRINE
     Dates: start: 20140501
  17. MYFORTIC [Concomitant]
     Active Substance: MYCOPHENOLATE SODIUM
     Dates: start: 20141226
  18. ZANTAC [Concomitant]
     Active Substance: RANITIDINE HYDROCHLORIDE
     Dates: start: 20141226
  19. ADVAIR HFA [Concomitant]
     Active Substance: FLUTICASONE PROPIONATE\SALMETEROL XINAFOATE
     Dosage: 1 DOSE
     Dates: start: 20141226
  20. AVODART [Concomitant]
     Active Substance: DUTASTERIDE
     Dates: start: 20141226
  21. PROGRAF [Concomitant]
     Active Substance: TACROLIMUS\TACROLIMUS ANHYDROUS
     Dates: start: 20141226
  22. PERCOCET [Concomitant]
     Active Substance: ACETAMINOPHEN\OXYCODONE HYDROCHLORIDE
     Dates: start: 20141226
  23. NEURONTIN [Concomitant]
     Active Substance: GABAPENTIN
     Dates: start: 20141226
  24. NEXIUM [Concomitant]
     Active Substance: ESOMEPRAZOLE MAGNESIUM
     Dates: start: 20141226
  25. ATIVAN [Concomitant]
     Active Substance: LORAZEPAM
     Dates: start: 20141226
  26. VITAMIN D3 [Concomitant]
     Active Substance: CHOLECALCIFEROL
     Dosage: DOSE: 5000 UNITS MWF
     Dates: start: 20141226
  27. DURAGESIC [Concomitant]
     Active Substance: FENTANYL
     Dates: start: 20141226
  28. CARAFATE [Concomitant]
     Active Substance: SUCRALFATE
     Dates: start: 20141226
  29. TEGRETOL [Concomitant]
     Active Substance: CARBAMAZEPINE
     Dates: start: 20141226
  30. FABRAZYME [Suspect]
     Active Substance: AGALSIDASE BETA
     Indication: FABRY^S DISEASE
     Route: 042
     Dates: start: 20100209
  31. DEMADEX [Concomitant]
     Active Substance: TORSEMIDE
     Dates: start: 20141226
  32. FABRAZYME [Suspect]
     Active Substance: AGALSIDASE BETA
     Indication: FABRY^S DISEASE
     Route: 042
  33. COLCRYS [Concomitant]
     Active Substance: COLCHICINE
     Dates: start: 20141226

REACTIONS (2)
  - Cough [Recovered/Resolved]
  - Upper respiratory tract infection [Unknown]
